FAERS Safety Report 24402846 (Version 3)
Quarter: 2025Q1

REPORT INFORMATION
  Report Type: Other
  Country: AU (occurrence: AU)
  Receive Date: 20241007
  Receipt Date: 20250107
  Transmission Date: 20250409
  Serious: No
  Sender: TOLMAR
  Company Number: AU-TOLMAR, INC.-24AU052673

PATIENT
  Age: 8 Year
  Sex: Female

DRUGS (3)
  1. ELIGARD [Suspect]
     Active Substance: LEUPROLIDE ACETATE
     Indication: Precocious puberty
     Dosage: 45 MILLIGRAM, Q 6 MONTH
     Dates: start: 2024
  2. ELIGARD [Suspect]
     Active Substance: LEUPROLIDE ACETATE
     Dosage: 45 MILLIGRAM, Q 6 MONTH
  3. ELIGARD [Suspect]
     Active Substance: LEUPROLIDE ACETATE
     Indication: Precocious puberty

REACTIONS (1)
  - Drug ineffective [Not Recovered/Not Resolved]
